FAERS Safety Report 7010863-1 (Version None)
Quarter: 2010Q3

REPORT INFORMATION
  Report Type: 
  Country: None (occurrence: None)
  Receive Date: 20100923
  Receipt Date: 20100923
  Transmission Date: 20110219
  Serious: Yes (Death)
  Sender: FDA-Public Use
  Company Number: None

PATIENT
  Sex: Male
  Weight: 97.0698 kg

DRUGS (2)
  1. CLOZAPINE [Suspect]
     Indication: SCHIZOAFFECTIVE DISORDER
     Dosage: 125MG AM PO
     Route: 048
     Dates: start: 20100614, end: 20100628
  2. CLOZAPINE [Suspect]
     Dosage: 150MG HS PO
     Route: 048

REACTIONS (2)
  - MYOCARDITIS [None]
  - TACHYCARDIA [None]
